FAERS Safety Report 6314420-1 (Version None)
Quarter: 2009Q3

REPORT INFORMATION
  Report Type: 
  Country: None (occurrence: None)
  Receive Date: 20090819
  Receipt Date: 20090807
  Transmission Date: 20100115
  Serious: Yes (Hospitalization, Other)
  Sender: FDA-Public Use
  Company Number: US-ROCHE-649336

PATIENT
  Age: 37 Year
  Sex: Male

DRUGS (2)
  1. PEGASYS [Suspect]
     Indication: UNEVALUABLE EVENT
     Route: 065
     Dates: start: 20080101
  2. RIBAVIRIN [Suspect]
     Indication: UNEVALUABLE EVENT
     Route: 065
     Dates: start: 20080101

REACTIONS (2)
  - AGGRESSION [None]
  - INJURY [None]
